FAERS Safety Report 7824010-7 (Version None)
Quarter: 2011Q4

REPORT INFORMATION
  Report Type: 
  Country: None (occurrence: None)
  Receive Date: 20111014
  Receipt Date: 20111010
  Transmission Date: 20120403
  Serious: Yes (Other)
  Sender: FDA-Public Use
  Company Number: CL-349-2011

PATIENT
  Age: 7 Day

DRUGS (1)
  1. MILRINONE UNK [Suspect]
     Indication: CARDIAC DISORDER
     Dosage: INTRAVENOUS
     Route: 042

REACTIONS (3)
  - SYMPTOM MASKED [None]
  - HYPERTENSION [None]
  - RENAL ARTERY STENOSIS [None]
